FAERS Safety Report 6073381-3 (Version None)
Quarter: 2009Q1

REPORT INFORMATION
  Report Type: 
  Country: None (occurrence: None)
  Receive Date: 20090211
  Receipt Date: 20090205
  Transmission Date: 20090719
  Serious: Yes (Hospitalization)
  Sender: FDA-Public Use
  Company Number: ES-AVENTIS-200311956EU

PATIENT
  Age: 59 Year
  Sex: Female

DRUGS (4)
  1. DOCETAXEL [Suspect]
     Indication: BREAST CANCER
     Route: 042
     Dates: start: 20020730, end: 20020730
  2. DOXORUBICIN HCL [Suspect]
     Indication: BREAST CANCER
     Route: 042
     Dates: start: 20020730, end: 20020730
  3. CYCLOPHOSPHAMIDE [Suspect]
     Indication: BREAST CANCER
     Route: 042
     Dates: start: 20020730, end: 20020730
  4. ACETYLSALICYLIC ACID SRT [Concomitant]

REACTIONS (2)
  - CEREBRAL ISCHAEMIA [None]
  - NERVOUS SYSTEM DISORDER [None]
